FAERS Safety Report 8477326-8 (Version None)
Quarter: 2012Q2

REPORT INFORMATION
  Report Type: 
  Country: None (occurrence: None)
  Receive Date: 20120629
  Receipt Date: 20120620
  Transmission Date: 20120825
  Serious: Yes (Hospitalization)
  Sender: FDA-Public Use
  Company Number: US-JNJFOC-20120603229

PATIENT
  Age: 52 Year
  Sex: Female

DRUGS (3)
  1. RISPERDAL [Concomitant]
     Route: 048
  2. DEPAKOTE [Concomitant]
     Route: 048
  3. RISPERDAL CONSTA [Suspect]
     Indication: PRODUCT USED FOR UNKNOWN INDICATION
     Route: 030

REACTIONS (4)
  - WRONG TECHNIQUE IN DRUG USAGE PROCESS [None]
  - DEVICE MALFUNCTION [None]
  - FOREIGN BODY [None]
  - HOSPITALISATION [None]
